FAERS Safety Report 18963698 (Version 1)
Quarter: 2021Q1

REPORT INFORMATION
  Report Type: Spontaneous
  Country: FR (occurrence: FR)
  Receive Date: 20210303
  Receipt Date: 20210303
  Transmission Date: 20210420
  Serious: Yes (Other)
  Sender: FDA-Public Use
  Company Number: FR-009507513-2102FRA009569

PATIENT
  Age: 55 Year
  Sex: Female

DRUGS (1)
  1. KEYTRUDA [Suspect]
     Active Substance: PEMBROLIZUMAB
     Indication: METASTATIC MALIGNANT MELANOMA
     Dosage: 400 MILLIGRAM, EVERY 6 WEEKS
     Route: 042
     Dates: start: 20181107, end: 20200415

REACTIONS (2)
  - Sarcoidosis [Not Recovered/Not Resolved]
  - Erythema nodosum [Not Recovered/Not Resolved]

NARRATIVE: CASE EVENT DATE: 20201204
